FAERS Safety Report 5239168-6 (Version None)
Quarter: 2007Q1

REPORT INFORMATION
  Report Type: 
  Country: None (occurrence: None)
  Receive Date: 20070212
  Receipt Date: 20070131
  Transmission Date: 20070707
  Serious: Yes (Other)
  Sender: FDA-Public Use
  Company Number: B0457453A

PATIENT
  Age: 45 Year
  Sex: Female

DRUGS (2)
  1. ALKERAN [Suspect]
     Indication: CASTLEMAN'S DISEASE
     Dosage: 10 MG / CYCLIC/
  2. PREDNISOLONE [Concomitant]

REACTIONS (1)
  - CHRONIC MYELOMONOCYTIC LEUKAEMIA [None]
